FAERS Safety Report 14047289 (Version 1)
Quarter: 2017Q4

REPORT INFORMATION
  Report Type: Report from Study
  Country: US (occurrence: US)
  Receive Date: 20171005
  Receipt Date: 20171005
  Transmission Date: 20180321
  Serious: Yes (Hospitalization)
  Sender: FDA-Public Use
  Company Number: US-GILEAD-2017-0296850

PATIENT
  Age: 57 Year
  Sex: Female

DRUGS (1)
  1. AMBRISENTAN [Suspect]
     Active Substance: AMBRISENTAN
     Indication: PULMONARY ARTERIAL HYPERTENSION
     Dosage: 10 MG, QD
     Route: 048
     Dates: start: 201511

REACTIONS (5)
  - Palpitations [Unknown]
  - Generalised oedema [Unknown]
  - Dyspnoea [Unknown]
  - Supraventricular tachycardia [Unknown]
  - Oedema [Unknown]

NARRATIVE: CASE EVENT DATE: 20170924
